FAERS Safety Report 17459300 (Version 2)
Quarter: 2020Q2

REPORT INFORMATION
  Report Type: Spontaneous
  Country: US (occurrence: US)
  Receive Date: 20200225
  Receipt Date: 20200427
  Transmission Date: 20200713
  Serious: No
  Sender: FDA-Public Use
  Company Number: US-ROCHE-2523245

PATIENT
  Sex: Male
  Weight: 102.15 kg

DRUGS (14)
  1. TRICOR [Concomitant]
     Active Substance: FENOFIBRATE
     Indication: BLOOD CHOLESTEROL INCREASED
  2. PROSCAR [Concomitant]
     Active Substance: FINASTERIDE
  3. ASPIRIN 81 [Concomitant]
     Active Substance: ASPIRIN
  4. BRILINTA [Concomitant]
     Active Substance: TICAGRELOR
  5. INVOKANA [Concomitant]
     Active Substance: CANAGLIFLOZIN
     Indication: DIABETES MELLITUS
  6. GLIMEPIRIDE. [Concomitant]
     Active Substance: GLIMEPIRIDE
     Indication: DIABETES MELLITUS
  7. RAPAFLO [Concomitant]
     Active Substance: SILODOSIN
  8. METFORMIN [Concomitant]
     Active Substance: METFORMIN HYDROCHLORIDE
     Indication: DIABETES MELLITUS
     Route: 065
  9. METOPROLOL. [Concomitant]
     Active Substance: METOPROLOL
     Indication: HYPERTENSION
     Route: 065
  10. LIPITOR [Concomitant]
     Active Substance: ATORVASTATIN CALCIUM
     Indication: BLOOD CHOLESTEROL INCREASED
  11. PEPCID [Concomitant]
     Active Substance: FAMOTIDINE
  12. XOFLUZA [Suspect]
     Active Substance: BALOXAVIR MARBOXIL
     Indication: INFLUENZA
     Route: 048
     Dates: start: 20200112
  13. RANEXA [Concomitant]
     Active Substance: RANOLAZINE
  14. ISOSORBIDE. [Concomitant]
     Active Substance: ISOSORBIDE

REACTIONS (4)
  - Condition aggravated [Unknown]
  - No adverse event [Unknown]
  - Intentional product use issue [Unknown]
  - Off label use [Unknown]
